FAERS Safety Report 14030780 (Version 1)
Quarter: 2017Q4

REPORT INFORMATION
  Report Type: Spontaneous
  Country: GB (occurrence: GB)
  Receive Date: 20171002
  Receipt Date: 20171002
  Transmission Date: 20180321
  Serious: Yes (Other)
  Sender: FDA-Public Use
  Company Number: GB-ASTRAZENECA-2017SE99084

PATIENT
  Age: 67 Year
  Sex: Male

DRUGS (2)
  1. TICAGRELOR. [Suspect]
     Active Substance: TICAGRELOR
     Dosage: UNK
     Route: 048
     Dates: start: 201701, end: 201705
  2. SIMVASTATIN. [Suspect]
     Active Substance: SIMVASTATIN
     Dosage: 80.0MG UNKNOWN
     Route: 065
     Dates: start: 201701, end: 201705

REACTIONS (2)
  - Overdose [Unknown]
  - Myelofibrosis [Unknown]

NARRATIVE: CASE EVENT DATE: 2017
